FAERS Safety Report 8832564 (Version 1)
Quarter: 2012Q4

REPORT INFORMATION
  Report Type: Spontaneous
  Country: US (occurrence: None)
  Receive Date: 20121009
  Receipt Date: 20121009
  Transmission Date: 20130627
  Serious: Yes (Hospitalization)
  Sender: FDA-Public Use
  Company Number: None

PATIENT
  Age: 68 Year
  Sex: Male

DRUGS (1)
  1. ENBREL [Suspect]
     Route: 058
     Dates: start: 2008, end: 20121001

REACTIONS (4)
  - Blister [None]
  - Pruritus [None]
  - Pyrexia [None]
  - Chills [None]
